FAERS Safety Report 8421622-7 (Version None)
Quarter: 2012Q2

REPORT INFORMATION
  Report Type: 
  Country: None (occurrence: None)
  Receive Date: 20120601
  Receipt Date: 20120521
  Transmission Date: 20120825
  Serious: Yes (Other)
  Sender: FDA-Public Use
  Company Number: 2012P1030709

PATIENT
  Age: 79 Year
  Sex: Female

DRUGS (11)
  1. ETHAMBUTOL HYDROCHLORIDE [Concomitant]
  2. RIFAMPICIN [Concomitant]
  3. ATENOLOL [Concomitant]
  4. VITAMIN D [Concomitant]
  5. SIMVASTATIN [Concomitant]
  6. ISONIAZID [Suspect]
     Indication: PULMONARY TUBERCULOSIS
     Dosage: 300 MG, QD, PO
     Route: 048
  7. PROGESTERONE [Concomitant]
  8. ESTROGEN [Concomitant]
  9. HYDROCHLOROTHIAZIDE [Concomitant]
  10. CANDESARTAN CILEXETIL [Concomitant]
  11. CALCIUM AND MAGNESIUM [Concomitant]

REACTIONS (1)
  - PANCREATITIS RELAPSING [None]
